FAERS Safety Report 4540612-8 (Version None)
Quarter: 2004Q4

REPORT INFORMATION
  Report Type: 
  Country: None (occurrence: None)
  Receive Date: 20041222
  Receipt Date: 20041203
  Transmission Date: 20050328
  Serious: Yes (Other)
  Sender: FDA-Public Use
  Company Number: GBS041216097

PATIENT
  Age: 7 Year
  Sex: Female

DRUGS (2)
  1. STRATTERA [Suspect]
     Indication: ATTENTION DEFICIT/HYPERACTIVITY DISORDER
     Dosage: 25 MG
     Dates: start: 20041130, end: 20041201
  2. RISPERIDONE [Concomitant]

REACTIONS (4)
  - AGGRESSION [None]
  - PHYSICAL ASSAULT [None]
  - SCREAMING [None]
  - SUICIDAL IDEATION [None]
